FAERS Safety Report 9695104 (Version 1)
Quarter: 2013Q4

REPORT INFORMATION
  Report Type: Report from Study
  Country: AR (occurrence: AR)
  Receive Date: 20131119
  Receipt Date: 20131119
  Transmission Date: 20140711
  Serious: Yes (Hospitalization)
  Sender: FDA-Public Use
  Company Number: PHHY2013AR130795

PATIENT
  Sex: Female

DRUGS (2)
  1. RASILEZ [Suspect]
     Indication: HYPERTENSION
     Dosage: 150 MG, DAILY
     Route: 048
     Dates: start: 2012, end: 20131027
  2. RASILEZ [Suspect]
     Dosage: UNK UKN, UNK
     Dates: start: 20131030

REACTIONS (3)
  - Diverticulum intestinal [Recovering/Resolving]
  - Abdominal pain upper [Unknown]
  - Blood pressure increased [Recovered/Resolved]
